FAERS Safety Report 23985294 (Version 4)
Quarter: 2024Q3

REPORT INFORMATION
  Report Type: Spontaneous
  Country: US (occurrence: US)
  Receive Date: 20240618
  Receipt Date: 20240814
  Transmission Date: 20241016
  Serious: No
  Sender: CALLIDITAS THERAPEUTICS
  Company Number: US-Calliditas-2024CAL01016

PATIENT
  Age: 69 Year
  Sex: Male

DRUGS (5)
  1. TARPEYO [Suspect]
     Active Substance: BUDESONIDE
     Indication: IgA nephropathy
     Route: 048
     Dates: start: 20240515, end: 20240726
  2. IRON [Concomitant]
     Active Substance: IRON
  3. VITAMIN B [Concomitant]
     Active Substance: VITAMIN B
  4. FISH OIL [Concomitant]
     Active Substance: FISH OIL
  5. PROBIOTICS NOS [Concomitant]
     Active Substance: PROBIOTICS NOS

REACTIONS (2)
  - Diarrhoea [Recovering/Resolving]
  - Constipation [Recovering/Resolving]

NARRATIVE: CASE EVENT DATE: 20240526
